FAERS Safety Report 22121204 (Version 3)
Quarter: 2024Q1

REPORT INFORMATION
  Report Type: Spontaneous
  Country: US (occurrence: US)
  Receive Date: 20230321
  Receipt Date: 20240221
  Transmission Date: 20240409
  Serious: No
  Sender: FDA-Public Use
  Company Number: US-PFIZER INC-202300118958

PATIENT
  Age: 65 Year
  Sex: Female
  Weight: 62.14 kg

DRUGS (3)
  1. IBRANCE [Interacting]
     Active Substance: PALBOCICLIB
     Indication: Breast cancer metastatic
     Dosage: 125 MG, CYCLIC (ONCE A DAY, 21 DAYS ON AND 7 DAYS OFF)
     Route: 048
     Dates: start: 2021
  2. IBRANCE [Interacting]
     Active Substance: PALBOCICLIB
     Dosage: 125 MG
  3. FULPHILA [Interacting]
     Active Substance: PEGFILGRASTIM-JMDB
     Dosage: UNK

REACTIONS (3)
  - Drug interaction [Unknown]
  - Feeling abnormal [Unknown]
  - Illness [Unknown]
